FAERS Safety Report 26126498 (Version 1)
Quarter: 2025Q4

REPORT INFORMATION
  Report Type: Spontaneous
  Country: AU (occurrence: None)
  Receive Date: 20251205
  Receipt Date: 20251205
  Transmission Date: 20260117
  Serious: Yes (Hospitalization)
  Sender: AMERICAN REGENT
  Company Number: AU-AMERICAN REGENT INC-2025003447

PATIENT
  Age: 79 Year
  Sex: Female

DRUGS (2)
  1. FERINJECT [Suspect]
     Active Substance: FERRIC CARBOXYMALTOSE
     Indication: Product used for unknown indication
     Dosage: 1000 MILLIGRAM
  2. DENOSUMAB [Concomitant]
     Active Substance: DENOSUMAB
     Indication: Product used for unknown indication
     Dosage: UNK
     Route: 065

REACTIONS (5)
  - Hypocalcaemia [Recovering/Resolving]
  - Hyperphosphaturia [Unknown]
  - Hyperparathyroidism [Unknown]
  - Blood 1,25-dihydroxycholecalciferol decreased [Unknown]
  - Hypophosphataemia [Recovering/Resolving]

NARRATIVE: CASE EVENT DATE: 20250101
